FAERS Safety Report 9699349 (Version 2)
Quarter: 2013Q4

REPORT INFORMATION
  Report Type: Spontaneous
  Country: US (occurrence: US)
  Receive Date: 20131120
  Receipt Date: 20131120
  Transmission Date: 20140711
  Serious: No
  Sender: FDA-Public Use
  Company Number: US-GILEAD-2008-0015319

PATIENT
  Age: 77 Year
  Sex: Female
  Weight: 59.87 kg

DRUGS (9)
  1. LETAIRIS [Suspect]
     Indication: PULMONARY HYPERTENSION
     Route: 048
     Dates: start: 20070820
  2. PLENDIL [Concomitant]
     Indication: ESSENTIAL HYPERTENSION
     Route: 048
  3. LEVOXYL [Concomitant]
     Indication: HYPOTHYROIDISM
     Route: 048
  4. VYTORIN [Concomitant]
     Indication: HYPERCHOLESTEROLAEMIA
     Route: 048
  5. ASPIRIN [Concomitant]
     Indication: ANTICOAGULANT THERAPY
     Route: 048
  6. VENTAVIS [Concomitant]
     Indication: PULMONARY ARTERIAL HYPERTENSION
     Route: 055
  7. NEXIUM [Concomitant]
     Indication: GASTROOESOPHAGEAL REFLUX DISEASE
     Route: 048
  8. TRAZODONE [Concomitant]
     Indication: INSOMNIA
     Dosage: QHS
     Route: 048
  9. AMBIEN [Concomitant]
     Indication: INSOMNIA
     Dosage: QHS
     Route: 048

REACTIONS (2)
  - Haemoptysis [Recovered/Resolved]
  - Oedema peripheral [Recovered/Resolved]
